FAERS Safety Report 9131812 (Version 1)
Quarter: 2013Q1

REPORT INFORMATION
  Report Type: Spontaneous
  Country: JP (occurrence: JP)
  Receive Date: 20130301
  Receipt Date: 20130301
  Transmission Date: 20140127
  Serious: Yes (Life-Threatening)
  Sender: FDA-Public Use
  Company Number: JP-GE HEALTHCARE MEDICAL DIAGNOSTICS-OMPQ-NO-1302S-0265

PATIENT
  Age: 87 Year
  Sex: Female

DRUGS (12)
  1. OMNIPAQUE [Suspect]
     Indication: PRODUCT USED FOR UNKNOWN INDICATION
     Route: 042
     Dates: start: 20130213, end: 20130213
  2. OMNIPAQUE [Suspect]
     Indication: DIAGNOSTIC PROCEDURE
  3. NEXIUM [Concomitant]
  4. MUCOSTA [Concomitant]
  5. MAGMITT [Concomitant]
  6. GASMOTIN [Concomitant]
  7. DAIKENCHUUTOU [Concomitant]
  8. BIOFERMIN [Concomitant]
  9. URSO [Concomitant]
  10. LASIX [Concomitant]
  11. FERROMIA [Concomitant]
  12. APORASNON [Concomitant]

REACTIONS (1)
  - Shock [Recovered/Resolved]
